FAERS Safety Report 9414732 (Version 2)
Quarter: 2014Q2

REPORT INFORMATION
  Report Type: Spontaneous
  Country: CN (occurrence: CN)
  Receive Date: 20130723
  Receipt Date: 20140515
  Transmission Date: 20141212
  Serious: Yes (Hospitalization)
  Sender: FDA-Public Use
  Company Number: PHHY2013CN077753

PATIENT
  Age: 68 Year
  Sex: Female

DRUGS (1)
  1. MIACALCIC [Suspect]
     Indication: OSTEOPOROSIS POSTMENOPAUSAL
     Dosage: 50 IU, QD
     Route: 030
     Dates: start: 20130716, end: 20130717

REACTIONS (6)
  - Dysphoria [Recovering/Resolving]
  - Palpitations [Recovering/Resolving]
  - Mental disorder [Recovering/Resolving]
  - Hot flush [Recovering/Resolving]
  - Nausea [Recovering/Resolving]
  - Vomiting [Recovering/Resolving]
